FAERS Safety Report 21042393 (Version 1)
Quarter: 2022Q3

REPORT INFORMATION
  Report Type: Report from Study
  Country: US (occurrence: US)
  Receive Date: 20220705
  Receipt Date: 20220705
  Transmission Date: 20221027
  Serious: Yes (Hospitalization)
  Sender: FDA-Public Use
  Company Number: US-ABBVIE-22K-163-4453236-00

PATIENT

DRUGS (2)
  1. HUMIRA [Suspect]
     Active Substance: ADALIMUMAB
     Indication: Product used for unknown indication
     Route: 058
     Dates: end: 20220406
  2. HUMIRA [Suspect]
     Active Substance: ADALIMUMAB
     Route: 058

REACTIONS (5)
  - Joint lock [Unknown]
  - Knee operation [Unknown]
  - Abdominal pain upper [Unknown]
  - Injection site discharge [Unknown]
  - Vomiting [Unknown]

NARRATIVE: CASE EVENT DATE: 20220506
